FAERS Safety Report 12150658 (Version 1)
Quarter: 2016Q1

REPORT INFORMATION
  Report Type: Spontaneous
  Country: US (occurrence: US)
  Receive Date: 20160304
  Receipt Date: 20160304
  Transmission Date: 20160526
  Serious: Yes (Other)
  Sender: FDA-Public Use
  Company Number: US-ENDO PHARMACEUTICALS INC.-2016-001630

PATIENT
  Sex: Female
  Weight: 70.37 kg

DRUGS (5)
  1. LOSARTAN. [Concomitant]
     Active Substance: LOSARTAN
     Indication: HYPERTENSION
     Route: 048
  2. MULTIVITAMIN [Concomitant]
     Active Substance: VITAMINS
     Indication: SUPPLEMENTATION THERAPY
     Route: 048
     Dates: start: 201602
  3. ASPIRIN. [Concomitant]
     Active Substance: ASPIRIN
     Indication: PROPHYLAXIS
     Route: 048
     Dates: start: 1995
  4. METAMUCIL [Concomitant]
     Active Substance: PLANTAGO SEED
     Indication: SUPPLEMENTATION THERAPY
     Dosage: MIX WITH 8 OZ OF WATER IN THE MORNING
     Route: 048
  5. AMLODIPINE BESYLATE TABLETS 10MG [Suspect]
     Active Substance: AMLODIPINE BESYLATE
     Indication: PRESYNCOPE
     Dosage: 10 MG TABLET TAKEN WITH 8 OZ OF WATER MIXED WITH METAMUCIL
     Route: 048
     Dates: start: 1985

REACTIONS (4)
  - Breast cancer [Not Recovered/Not Resolved]
  - Dysgeusia [Recovered/Resolved]
  - Off label use [Not Recovered/Not Resolved]
  - Product physical issue [Recovered/Resolved]

NARRATIVE: CASE EVENT DATE: 1985
